FAERS Safety Report 14036447 (Version 1)
Quarter: 2017Q4

REPORT INFORMATION
  Report Type: Spontaneous
  Country: US (occurrence: US)
  Receive Date: 20171003
  Receipt Date: 20171003
  Transmission Date: 20180321
  Serious: No
  Sender: FDA-Public Use
  Company Number: US-ROCHE-1921334

PATIENT
  Age: 60 Year
  Sex: Female

DRUGS (1)
  1. CATHFLO ACTIVASE [Suspect]
     Active Substance: ALTEPLASE
     Indication: PULMONARY EMBOLISM
     Dosage: HAD A ONE TIME DOSE
     Route: 042
     Dates: start: 20170414

REACTIONS (3)
  - Extravasation [Unknown]
  - Infusion site extravasation [Unknown]
  - Contusion [Unknown]

NARRATIVE: CASE EVENT DATE: 20170414
